FAERS Safety Report 5277230-2 (Version None)
Quarter: 2007Q1

REPORT INFORMATION
  Report Type: 
  Country: None (occurrence: None)
  Receive Date: 20070322
  Receipt Date: 20070322
  Transmission Date: 20070707
  Serious: Yes (Hospitalization)
  Sender: FDA-Public Use
  Company Number: None

PATIENT
  Age: 49 Year
  Sex: Male

DRUGS (1)
  1. LYRICA [Suspect]
     Dosage: PO
     Route: 048

REACTIONS (3)
  - GAIT DISTURBANCE [None]
  - HEADACHE [None]
  - VERTIGO [None]
